FAERS Safety Report 18513290 (Version 1)
Quarter: 2020Q4

REPORT INFORMATION
  Report Type: Spontaneous
  Country: US (occurrence: US)
  Receive Date: 20201117
  Receipt Date: 20201117
  Transmission Date: 20210114
  Serious: No
  Sender: FDA-Public Use
  Company Number: US-CARDINAL HEALTH 414, LLC-2096032

PATIENT
  Age: 71 Year
  Sex: Female

DRUGS (1)
  1. FLUDEOXYGLUCOSE F-18. [Suspect]
     Active Substance: FLUDEOXYGLUCOSE F-18
     Indication: DIAGNOSTIC PROCEDURE
     Route: 042

REACTIONS (2)
  - Palpitations [Recovered/Resolved]
  - Feeling hot [Recovered/Resolved]
